FAERS Safety Report 5393485-8 (Version None)
Quarter: 2007Q3

REPORT INFORMATION
  Report Type: 
  Country: None (occurrence: None)
  Receive Date: 20070723
  Receipt Date: 20060918
  Transmission Date: 20080115
  Serious: Yes (Life-Threatening, Hospitalization)
  Sender: FDA-Public Use
  Company Number: A0609706A

PATIENT
  Age: 62 Year
  Sex: Female
  Weight: 183 kg

DRUGS (6)
  1. AVANDIA [Suspect]
     Route: 048
  2. AMARYL [Concomitant]
  3. LISINOPRIL [Concomitant]
  4. METFORMIN HCL [Concomitant]
  5. DIGOXIN [Concomitant]
  6. LASIX [Concomitant]

REACTIONS (1)
  - CARDIAC FAILURE [None]
